FAERS Safety Report 6761544-0 (Version None)
Quarter: 2010Q2

REPORT INFORMATION
  Report Type: 
  Country: None (occurrence: None)
  Receive Date: 20100609
  Receipt Date: 20100604
  Transmission Date: 20101027
  Serious: Yes (Life-Threatening, Hospitalization)
  Sender: FDA-Public Use
  Company Number: FR-BIOGENIDEC-2010BI008095

PATIENT
  Age: 27 Year
  Sex: Male
  Weight: 60 kg

DRUGS (1)
  1. TYSABRI [Suspect]
     Indication: MULTIPLE SCLEROSIS
     Route: 042
     Dates: start: 20070618, end: 20100118

REACTIONS (3)
  - MULTIPLE SCLEROSIS RELAPSE [None]
  - PROGRESSIVE MULTIFOCAL LEUKOENCEPHALOPATHY [None]
  - TESTIS CANCER [None]
